FAERS Safety Report 7749825-5 (Version None)
Quarter: 2011Q3

REPORT INFORMATION
  Report Type: 
  Country: None (occurrence: None)
  Receive Date: 20110914
  Receipt Date: 20110911
  Transmission Date: 20111222
  Serious: Yes (Life-Threatening)
  Sender: FDA-Public Use
  Company Number: ES-ROCHE-801863

PATIENT
  Age: 61 Year
  Sex: Female

DRUGS (1)
  1. TRASTUZUMAB [Suspect]
     Route: 065

REACTIONS (3)
  - DYSPNOEA [None]
  - DRUG INTOLERANCE [None]
  - FATIGUE [None]
